FAERS Safety Report 9365150 (Version 2)
Quarter: 2013Q2

REPORT INFORMATION
  Report Type: Spontaneous
  Country: MX (occurrence: MX)
  Receive Date: 20130624
  Receipt Date: 20130627
  Transmission Date: 20140414
  Serious: Yes (Other)
  Sender: FDA-Public Use
  Company Number: PHHY2013MX062533

PATIENT
  Age: 17 Year
  Sex: Male

DRUGS (1)
  1. OMNITROPE [Suspect]
     Indication: GROWTH HORMONE DEFICIENCY
     Dosage: 0.20 MG
     Dates: start: 201304, end: 201305

REACTIONS (2)
  - Prostatomegaly [Unknown]
  - Prostatitis [Unknown]
